FAERS Safety Report 8365868-5 (Version None)
Quarter: 2012Q2

REPORT INFORMATION
  Report Type: 
  Country: None (occurrence: None)
  Receive Date: 20120515
  Receipt Date: 20120430
  Transmission Date: 20120825
  Serious: Yes (Hospitalization, Other)
  Sender: FDA-Public Use
  Company Number: 2012MA005578

PATIENT
  Age: 39 Year
  Sex: Female
  Weight: 51 kg

DRUGS (2)
  1. VENLAFAXINE HCL [Suspect]
     Indication: DEPRESSION
     Dosage: 7.5 GM;PO
     Route: 048
  2. ALPRAZOLAM [Suspect]
     Dosage: 45 MG;PO
     Route: 048

REACTIONS (3)
  - HYPOGLYCAEMIA [None]
  - SEROTONIN SYNDROME [None]
  - TOXICITY TO VARIOUS AGENTS [None]
